FAERS Safety Report 14644186 (Version 1)
Quarter: 2018Q1

REPORT INFORMATION
  Report Type: Report from Study
  Country: US (occurrence: US)
  Receive Date: 20180315
  Receipt Date: 20180315
  Transmission Date: 20180509
  Serious: Yes (Death, Hospitalization)
  Sender: FDA-Public Use
  Company Number: US-ACTELION-A-NJ2018-165927

PATIENT
  Age: 66 Year
  Sex: Female
  Weight: 58.96 kg

DRUGS (4)
  1. VELETRI [Suspect]
     Active Substance: EPOPROSTENOL
     Dosage: 21 NG/KG, PER MIN
     Route: 042
  2. VELETRI [Suspect]
     Active Substance: EPOPROSTENOL
     Indication: PULMONARY ARTERIAL HYPERTENSION
     Dosage: 19 NG/KG, PER MIN
     Route: 042
  3. SILDENAFIL CITRATE. [Concomitant]
     Active Substance: SILDENAFIL CITRATE
  4. LETAIRIS [Concomitant]
     Active Substance: AMBRISENTAN

REACTIONS (24)
  - Flatulence [Unknown]
  - Pain in jaw [Unknown]
  - Aura [Unknown]
  - Lacrimation increased [Unknown]
  - Nausea [Unknown]
  - Concomitant disease progression [Unknown]
  - Constipation [Unknown]
  - Headache [Unknown]
  - Death [Fatal]
  - Diarrhoea [Unknown]
  - Defaecation urgency [Unknown]
  - Feeling abnormal [Unknown]
  - Application site pruritus [Unknown]
  - Catheter site pruritus [Unknown]
  - Photosensitivity reaction [Unknown]
  - Nasal congestion [Unknown]
  - Sinus disorder [Unknown]
  - Pleural effusion [Unknown]
  - Aspiration pleural cavity [Unknown]
  - Hypoacusis [Unknown]
  - Chills [Unknown]
  - Pulmonary hypertension [Unknown]
  - Oxygen saturation decreased [Unknown]
  - Respiration abnormal [Unknown]

NARRATIVE: CASE EVENT DATE: 20180306
